FAERS Safety Report 17889870 (Version 17)
Quarter: 2022Q2

REPORT INFORMATION
  Report Type: Spontaneous
  Country: US (occurrence: US)
  Receive Date: 20200612
  Receipt Date: 20220617
  Transmission Date: 20220721
  Serious: Yes (Other)
  Sender: FDA-Public Use
  Company Number: US-GLAXOSMITHKLINE-US2020AMR098896

PATIENT

DRUGS (15)
  1. ZEJULA [Suspect]
     Active Substance: NIRAPARIB
     Indication: Ovarian cancer
     Dosage: 300 MG, QD
     Route: 048
     Dates: start: 20200511
  2. ZEJULA [Suspect]
     Active Substance: NIRAPARIB
     Dosage: 300 MG, QD
     Route: 048
  3. ZEJULA [Suspect]
     Active Substance: NIRAPARIB
     Dosage: 300 MG, QD
     Route: 048
     Dates: start: 20200501
  4. ZEJULA [Suspect]
     Active Substance: NIRAPARIB
     Dosage: 300 MG, QD
  5. ZEJULA [Suspect]
     Active Substance: NIRAPARIB
     Dosage: 300 MG, QD
     Dates: start: 20200511
  6. ZEJULA [Suspect]
     Active Substance: NIRAPARIB
     Dosage: 200 MG, QD
     Route: 048
     Dates: start: 20210414
  7. ZEJULA [Suspect]
     Active Substance: NIRAPARIB
     Dosage: 200 MG, QD
  8. ZEJULA [Suspect]
     Active Substance: NIRAPARIB
     Dosage: 200 MG, QD
     Route: 048
  9. ZEJULA [Suspect]
     Active Substance: NIRAPARIB
     Dosage: 200 MG, QD
  10. ZEJULA [Suspect]
     Active Substance: NIRAPARIB
     Dosage: 200 MG, QD
     Route: 048
  11. ZEJULA [Suspect]
     Active Substance: NIRAPARIB
     Dosage: 200 MG, QD
  12. ZEJULA [Suspect]
     Active Substance: NIRAPARIB
     Dosage: 200 MG, QD
     Route: 048
  13. ZEJULA [Suspect]
     Active Substance: NIRAPARIB
     Dosage: 200 MG, QD
  14. ZEJULA [Suspect]
     Active Substance: NIRAPARIB
     Dosage: 200 MG, QD
     Route: 048
  15. ZEJULA [Suspect]
     Active Substance: NIRAPARIB
     Dosage: 200 MG, QD
     Route: 048

REACTIONS (43)
  - Neuropathy peripheral [Unknown]
  - Gastrointestinal fungal infection [Unknown]
  - Dysgeusia [Unknown]
  - Fatigue [Unknown]
  - Feeling hot [Unknown]
  - Hypoaesthesia [Not Recovered/Not Resolved]
  - Alopecia [Not Recovered/Not Resolved]
  - Nausea [Not Recovered/Not Resolved]
  - Flatulence [Not Recovered/Not Resolved]
  - Peripheral swelling [Not Recovered/Not Resolved]
  - Memory impairment [Not Recovered/Not Resolved]
  - Dyspnoea exertional [Not Recovered/Not Resolved]
  - Depression [Not Recovered/Not Resolved]
  - Ocular discomfort [Not Recovered/Not Resolved]
  - Constipation [Not Recovered/Not Resolved]
  - Hormone level abnormal [Unknown]
  - Lacrimation increased [Not Recovered/Not Resolved]
  - Blood pressure increased [Unknown]
  - Haemoglobin decreased [Unknown]
  - Heart rate increased [Not Recovered/Not Resolved]
  - Blood cholesterol increased [Unknown]
  - Aspartate aminotransferase increased [Not Recovered/Not Resolved]
  - Alanine aminotransferase increased [Not Recovered/Not Resolved]
  - Blood alkaline phosphatase increased [Not Recovered/Not Resolved]
  - White blood cell count decreased [Recovered/Resolved]
  - Neutrophil count decreased [Not Recovered/Not Resolved]
  - Laboratory test abnormal [Unknown]
  - Hernia repair [Unknown]
  - Hypersensitivity [Unknown]
  - Pruritus [Unknown]
  - Red blood cell count decreased [Not Recovered/Not Resolved]
  - Haematocrit decreased [Unknown]
  - Nasal congestion [Unknown]
  - Epistaxis [Unknown]
  - Dizziness [Unknown]
  - Oropharyngeal pain [Unknown]
  - Hair growth abnormal [Unknown]
  - Hair texture abnormal [Unknown]
  - Madarosis [Unknown]
  - Blood glucose increased [Recovered/Resolved]
  - Fungal foot infection [Unknown]
  - Nail fold inflammation [Unknown]
  - Weight increased [Unknown]

NARRATIVE: CASE EVENT DATE: 20210818
